FAERS Safety Report 5197829-1 (Version None)
Quarter: 2006Q4

REPORT INFORMATION
  Report Type: 
  Country: None (occurrence: None)
  Receive Date: 20061228
  Receipt Date: 20061213
  Transmission Date: 20070319
  Serious: Yes (Hospitalization)
  Sender: FDA-Public Use
  Company Number: 2006BI012190

PATIENT
  Age: 40 Year
  Sex: Female
  Weight: 77.1115 kg

DRUGS (1)
  1. AVONEX [Suspect]
     Indication: MULTIPLE SCLEROSIS
     Dosage: 30 UG QW IM
     Route: 030
     Dates: start: 19990101

REACTIONS (7)
  - ABASIA [None]
  - CONDITION AGGRAVATED [None]
  - DYSSTASIA [None]
  - FALL [None]
  - MULTIPLE SCLEROSIS [None]
  - PLASMAPHERESIS [None]
  - URINARY TRACT INFECTION [None]
